FAERS Safety Report 8239846-0 (Version None)
Quarter: 2012Q1

REPORT INFORMATION
  Report Type: 
  Country: None (occurrence: None)
  Receive Date: 20120328
  Receipt Date: 20120314
  Transmission Date: 20120608
  Serious: Yes (Other)
  Sender: FDA-Public Use
  Company Number: PHHY2012JP014535

PATIENT
  Age: 63 Year
  Sex: Female

DRUGS (6)
  1. ALOSENN [Concomitant]
     Route: 048
  2. RABEPRAZOLE SODIUM [Concomitant]
     Route: 048
  3. MAGNESIUM SULFATE [Concomitant]
     Route: 048
  4. LASIX [Concomitant]
     Route: 048
  5. TASIGNA [Suspect]
     Route: 048
  6. TASIGNA [Suspect]
     Indication: CHRONIC MYELOID LEUKAEMIA
     Dosage: 400 MG,
     Route: 048
     Dates: start: 20111111, end: 20120215

REACTIONS (23)
  - SPLENIC ABSCESS [None]
  - PRODUCTIVE COUGH [None]
  - SINUSITIS [None]
  - CONJUNCTIVAL HYPERAEMIA [None]
  - WHITE BLOOD CELL COUNT DECREASED [None]
  - PLEURISY [None]
  - GRANULOCYTE COUNT DECREASED [None]
  - CONJUNCTIVITIS [None]
  - PLATELET COUNT DECREASED [None]
  - PYREXIA [None]
  - CHEST PAIN [None]
  - EYE DISCHARGE [None]
  - RHINORRHOEA [None]
  - PANCYTOPENIA [None]
  - INFECTION [None]
  - HAEMOGLOBIN DECREASED [None]
  - ABDOMINAL PAIN [None]
  - RHINITIS [None]
  - PNEUMONIA [None]
  - COUGH [None]
  - C-REACTIVE PROTEIN INCREASED [None]
  - COMPUTERISED TOMOGRAM ABNORMAL [None]
  - PRURITUS [None]
